FAERS Safety Report 24329485 (Version 1)
Quarter: 2024Q3

REPORT INFORMATION
  Report Type: Spontaneous
  Country: US (occurrence: US)
  Receive Date: 20240917
  Receipt Date: 20240917
  Transmission Date: 20241017
  Serious: No
  Sender: FRESENIUS MEDICAL CARE
  Company Number: US-FMCRTG-FMC-2408-000975

PATIENT
  Sex: Male

DRUGS (1)
  1. DELFLEX [Suspect]
     Active Substance: CALCIUM CHLORIDE\DEXTROSE\MAGNESIUM CHLORIDE\SODIUM CHLORIDE\SODIUM LACTATE
     Indication: End stage renal disease
     Dosage: CCPD, TTV 7000 ML, TST 8 HOURS, 4 FILLS, TX BASED, FV 2000 ML, LFV 1000 ML, DWT 02 HOURS 14 MINUTES;
     Route: 033

REACTIONS (1)
  - Weight decreased [Unknown]
